FAERS Safety Report 8949433 (Version 2)
Quarter: 2013Q1

REPORT INFORMATION
  Report Type: Spontaneous
  Country: US (occurrence: US)
  Receive Date: 20121206
  Receipt Date: 20130109
  Transmission Date: 20140127
  Serious: Yes (Other)
  Sender: FDA-Public Use
  Company Number: US-BAYER-2012-128409

PATIENT
  Age: 80 Year
  Sex: Male
  Weight: 77.57 kg

DRUGS (8)
  1. XARELTO [Suspect]
     Indication: CEREBROVASCULAR ACCIDENT PROPHYLAXIS
     Dosage: 15 MG, QD
     Route: 048
     Dates: start: 201209
  2. XARELTO [Suspect]
     Indication: ATRIAL FIBRILLATION
  3. ACETYLSALICYLIC ACID [Suspect]
     Indication: PRODUCT USED FOR UNKNOWN INDICATION
     Dosage: UNK
  4. OMEGA-3 MARINE TRIGLYCERIDES [Suspect]
     Indication: BLOOD TRIGLYCERIDES INCREASED
     Dosage: UNK
     Route: 065
  5. MULTIVITAMINS [Suspect]
     Indication: PRODUCT USED FOR UNKNOWN INDICATION
     Dosage: UNK
     Route: 065
  6. OMEGA-3 [Concomitant]
     Dosage: UNK
  7. OMEGA-3 [Concomitant]
  8. GLUCOSAMINE [Concomitant]
     Dosage: UNK
     Dates: end: 201211

REACTIONS (1)
  - Epistaxis [Recovered/Resolved]
